FAERS Safety Report 9327719 (Version 2)
Quarter: 2013Q4

REPORT INFORMATION
  Report Type: Report from Study
  Country: CA (occurrence: CA)
  Receive Date: 20130604
  Receipt Date: 20131217
  Transmission Date: 20140711
  Serious: Yes (Hospitalization)
  Sender: FDA-Public Use
  Company Number: CA-JNJFOC-20130522110

PATIENT
  Age: 23 Year
  Sex: Female
  Weight: 52 kg

DRUGS (4)
  1. REMICADE [Suspect]
     Indication: CROHN^S DISEASE
     Route: 042
     Dates: start: 20130515
  2. REMICADE [Suspect]
     Indication: CROHN^S DISEASE
     Route: 042
     Dates: start: 20130527, end: 20130527
  3. REMICADE [Suspect]
     Indication: CROHN^S DISEASE
     Route: 042
     Dates: start: 2002
  4. SOLUCORTEF [Concomitant]
     Indication: PREMEDICATION
     Route: 042

REACTIONS (7)
  - Dyspnoea [Recovered/Resolved]
  - Osteitis [Recovered/Resolved]
  - Chest discomfort [Recovered/Resolved]
  - Joint lock [Recovered/Resolved]
  - Infusion related reaction [Recovered/Resolved]
  - Pain in jaw [Recovered/Resolved]
  - Chest pain [Recovered/Resolved]
